FAERS Safety Report 18799183 (Version 1)
Quarter: 2021Q1

REPORT INFORMATION
  Report Type: Spontaneous
  Country: JP (occurrence: JP)
  Receive Date: 20210128
  Receipt Date: 20210128
  Transmission Date: 20210419
  Serious: Yes (Death, Hospitalization, Other)
  Sender: FDA-Public Use
  Company Number: JP-009507513-2012JPN003142J

PATIENT
  Age: 7 Decade
  Sex: Female

DRUGS (1)
  1. KEYTRUDA [Suspect]
     Active Substance: PEMBROLIZUMAB
     Dosage: 200 MILLIGRAM, Q3W
     Route: 041
     Dates: start: 20201001, end: 2020

REACTIONS (4)
  - Myocarditis [Fatal]
  - Cardiac failure [Unknown]
  - Tubulointerstitial nephritis [Not Recovered/Not Resolved]
  - Enterocolitis [Unknown]

NARRATIVE: CASE EVENT DATE: 202010
